FAERS Safety Report 14955910 (Version 8)
Quarter: 2019Q1

REPORT INFORMATION
  Report Type: Report from Study
  Country: US (occurrence: US)
  Receive Date: 20180531
  Receipt Date: 20190206
  Transmission Date: 20190417
  Serious: Yes (Hospitalization)
  Sender: FDA-Public Use
  Company Number: US-ROCHE-2129930

PATIENT
  Age: 54 Year
  Sex: Female
  Weight: 125.8 kg

DRUGS (29)
  1. MUPIROCIN. [Concomitant]
     Active Substance: MUPIROCIN
     Route: 061
  2. SILVER SULFADIAZIN [Concomitant]
     Active Substance: SILVER SULFADIAZINE
     Route: 061
  3. HYDROCORTISONE. [Concomitant]
     Active Substance: HYDROCORTISONE
     Dosage: TAKE 2 TABLETS (10 MG) ONE IN AM AND ONE IN PM, MAY TAKE AN ADDITIONAL 5-10 MG AS REQUIRED
     Route: 065
  4. IMODIUM [Concomitant]
     Active Substance: LOPERAMIDE HYDROCHLORIDE
     Route: 065
  5. COBIMETINIB. [Suspect]
     Active Substance: COBIMETINIB
     Route: 048
     Dates: start: 20180808
  6. COBIMETINIB. [Suspect]
     Active Substance: COBIMETINIB
     Route: 048
  7. SILVER SULFADIAZIN [Concomitant]
     Active Substance: SILVER SULFADIAZINE
     Route: 061
  8. LEVOTHYROXINE. [Concomitant]
     Active Substance: LEVOTHYROXINE
     Route: 048
  9. CLOTRIMAZOLE. [Concomitant]
     Active Substance: CLOTRIMAZOLE
     Route: 061
  10. LEVETIRACETAM. [Concomitant]
     Active Substance: LEVETIRACETAM
     Route: 065
  11. FLUOCINONIDE. [Concomitant]
     Active Substance: FLUOCINONIDE
     Route: 061
  12. SOLU-CORTEF [Concomitant]
     Active Substance: HYDROCORTISONE SODIUM SUCCINATE
     Route: 065
  13. ACETAMINOPHEN. [Concomitant]
     Active Substance: ACETAMINOPHEN
     Route: 065
  14. FERROUS SULFATE. [Concomitant]
     Active Substance: FERROUS SULFATE
     Route: 048
  15. AMMONIUM LACTATE. [Concomitant]
     Active Substance: AMMONIUM LACTATE
     Route: 061
  16. DESMOPRESSIN [Concomitant]
     Active Substance: DESMOPRESSIN
     Dosage: NASAL SPRAY: 1 PUFF IN EACH NOSTRILS
     Route: 065
  17. COBIMETINIB. [Suspect]
     Active Substance: COBIMETINIB
     Indication: ERDHEIM-CHESTER DISEASE
     Dosage: LAST DOSE OF COBIMETINIB ON 23/OCT/2018
     Route: 048
     Dates: start: 20161209
  18. DDAVP [Concomitant]
     Active Substance: DESMOPRESSIN ACETATE
     Route: 045
  19. PREGABALIN. [Concomitant]
     Active Substance: PREGABALIN
     Route: 065
  20. ACLOVATE [Concomitant]
     Active Substance: ALCLOMETASONE DIPROPIONATE
     Route: 061
  21. TRIAMCINOLONE [Concomitant]
     Active Substance: TRIAMCINOLONE
     Route: 061
  22. CEFADROXIL. [Concomitant]
     Active Substance: CEFADROXIL
     Dosage: FOR 10 DAYS
     Route: 048
  23. PENLAC [Concomitant]
     Active Substance: CICLOPIROX
     Dosage: FOR 90 DAYS
     Route: 061
  24. PANTOPRAZOLE [Concomitant]
     Active Substance: PANTOPRAZOLE
     Dosage: DELAYED RELEASE
     Route: 048
  25. THIAMINE. [Concomitant]
     Active Substance: THIAMINE
     Route: 065
  26. LOPERAMIDE [Concomitant]
     Active Substance: LOPERAMIDE
     Route: 048
  27. LEVETIRACETAM. [Concomitant]
     Active Substance: LEVETIRACETAM
     Route: 065
  28. CYANOCOBALAMIN. [Concomitant]
     Active Substance: CYANOCOBALAMIN
     Dosage: INJECTABLE SOLUTION ONCE IN AWEEKS ONLY ON TUESDAY
     Route: 065
  29. CAMPHOR + MENTHOL [Concomitant]
     Route: 061

REACTIONS (24)
  - Dehydration [Unknown]
  - Metabolic acidosis [Unknown]
  - Blood thyroid stimulating hormone decreased [Unknown]
  - Dysphagia [Unknown]
  - Respiratory failure [Unknown]
  - Anaemia [Unknown]
  - Cognitive disorder [Unknown]
  - Acute kidney injury [Unknown]
  - Azotaemia [Unknown]
  - Nephropathy toxic [Unknown]
  - Dyspnoea [Unknown]
  - Hypernatraemia [Recovering/Resolving]
  - Asthenia [Unknown]
  - Feeling cold [Unknown]
  - Confusional state [Unknown]
  - Epigastric discomfort [Unknown]
  - Drug reaction with eosinophilia and systemic symptoms [Unknown]
  - Urinary tract infection [Unknown]
  - Pollakiuria [Unknown]
  - Somnolence [Unknown]
  - Blood lactic acid increased [Unknown]
  - Dysarthria [Unknown]
  - Hypoxia [Unknown]
  - Pneumonia [Unknown]

NARRATIVE: CASE EVENT DATE: 20180523
